FAERS Safety Report 11360672 (Version 1)
Quarter: 2015Q3

REPORT INFORMATION
  Report Type: Spontaneous
  Country: GB (occurrence: GB)
  Receive Date: 20150810
  Receipt Date: 20150810
  Transmission Date: 20151125
  Serious: Yes (Other)
  Sender: FDA-Public Use
  Company Number: GB-AUROBINDO-AUR-APL-2015-06974

PATIENT
  Age: 57 Year
  Sex: Male
  Weight: 95.25 kg

DRUGS (3)
  1. SIMVASTATIN 40MG [Suspect]
     Active Substance: SIMVASTATIN
     Indication: BLOOD CHOLESTEROL INCREASED
     Dosage: 40 MG
     Route: 048
  2. AMLODIPINE [Suspect]
     Active Substance: AMLODIPINE BESYLATE
     Indication: HYPERTENSION
     Dosage: 5  MG
     Route: 048
  3. RAMIPRIL. [Concomitant]
     Active Substance: RAMIPRIL
     Indication: HYPERTENSION
     Route: 065

REACTIONS (3)
  - Drug interaction [Unknown]
  - Extrasystoles [Not Recovered/Not Resolved]
  - Cardiomyopathy [Unknown]
